FAERS Safety Report 6849176-7 (Version None)
Quarter: 2010Q3

REPORT INFORMATION
  Report Type: 
  Country: None (occurrence: None)
  Receive Date: 20100716
  Receipt Date: 20100712
  Transmission Date: 20110219
  Serious: Yes (Death)
  Sender: FDA-Public Use
  Company Number: PHHY2010NL45634

PATIENT

DRUGS (1)
  1. GLEEVEC [Suspect]
     Dosage: UNK

REACTIONS (1)
  - PNEUMOCOCCAL INFECTION [None]
